FAERS Safety Report 7418674-X (Version None)
Quarter: 2011Q2

REPORT INFORMATION
  Report Type: 
  Country: None (occurrence: None)
  Receive Date: 20110415
  Receipt Date: 20110405
  Transmission Date: 20111010
  Serious: Yes (Other)
  Sender: FDA-Public Use
  Company Number: BR-BAYER-2011-030080

PATIENT
  Age: 37 Year
  Sex: Female

DRUGS (1)
  1. MIRENA [Suspect]
     Indication: ENDOMETRIOSIS
     Dosage: 20 ?G, CONT
     Route: 015
     Dates: start: 20090501, end: 20110201

REACTIONS (11)
  - BURNING SENSATION [None]
  - TREMOR [None]
  - FLUID RETENTION [None]
  - STRESS [None]
  - LOSS OF CONSCIOUSNESS [None]
  - HYPERSENSITIVITY [None]
  - PAIN [None]
  - GAIT DISTURBANCE [None]
  - WEIGHT INCREASED [None]
  - SWELLING [None]
  - PRURITUS [None]
